FAERS Safety Report 19447482 (Version 1)
Quarter: 2021Q2

REPORT INFORMATION
  Report Type: Spontaneous
  Country: US (occurrence: US)
  Receive Date: 20210621
  Receipt Date: 20210621
  Transmission Date: 20210717
  Serious: Yes (Other)
  Sender: FDA-Public Use
  Company Number: None

PATIENT
  Sex: Female

DRUGS (3)
  1. LIDOCAINE 4% [Suspect]
     Active Substance: LIDOCAINE
  2. BIOFREEZE [Suspect]
     Active Substance: MENTHOL
  3. SALONPAS [Suspect]
     Active Substance: DICLOFENAC SODIUM

REACTIONS (1)
  - Drug ineffective [None]
